FAERS Safety Report 15159561 (Version 1)
Quarter: 2018Q3

REPORT INFORMATION
  Report Type: Spontaneous
  Country: GR (occurrence: GR)
  Receive Date: 20180718
  Receipt Date: 20180718
  Transmission Date: 20181010
  Serious: Yes (Other)
  Sender: FDA-Public Use
  Company Number: PHHY2018GR049189

PATIENT
  Age: 80 Year
  Sex: Male
  Weight: 70 kg

DRUGS (1)
  1. TAMSULOSIN HYDROCHLORIDE. [Suspect]
     Active Substance: TAMSULOSIN HYDROCHLORIDE
     Indication: CALCULUS BLADDER
     Dosage: 1 DF, QD
     Route: 048
     Dates: start: 20180415, end: 20180419

REACTIONS (1)
  - Eye haematoma [Not Recovered/Not Resolved]

NARRATIVE: CASE EVENT DATE: 20180417
